FAERS Safety Report 23682971 (Version 1)
Quarter: 2024Q1

REPORT INFORMATION
  Report Type: Spontaneous
  Country: SE (occurrence: SE)
  Receive Date: 20240328
  Receipt Date: 20240328
  Transmission Date: 20240410
  Serious: Yes (Life-Threatening, Other)
  Sender: FDA-Public Use
  Company Number: None

PATIENT
  Age: 36 Year
  Sex: Female
  Weight: 70 kg

DRUGS (12)
  1. LISDEXAMFETAMINE DIMESYLATE [Suspect]
     Active Substance: LISDEXAMFETAMINE DIMESYLATE
     Indication: Attention deficit hyperactivity disorder
     Dosage: 40 MILLIGRAM
     Route: 048
     Dates: start: 20230724, end: 20240216
  2. LISDEXAMFETAMINE DIMESYLATE [Suspect]
     Active Substance: LISDEXAMFETAMINE DIMESYLATE
     Dosage: 30 MILLIGRAM
     Route: 048
     Dates: end: 20240215
  3. Naproxen evolan [Concomitant]
     Dosage: UNK
     Route: 065
     Dates: start: 20230208
  4. HYDROXYZINE [Concomitant]
     Active Substance: HYDROXYZINE HYDROCHLORIDE
     Dosage: UNK
     Route: 065
     Dates: start: 20230517
  5. Momenex [Concomitant]
     Dosage: UNK, QD
     Route: 065
     Dates: start: 20230807
  6. KOLEKALCIFEROL EVOLAN [Concomitant]
     Dosage: 2000 INTERNATIONAL UNIT, QD
     Route: 065
     Dates: start: 20230807
  7. ALBUTEROL SULFATE [Concomitant]
     Active Substance: ALBUTEROL SULFATE
     Dosage: UNK
     Route: 065
     Dates: start: 20230327
  8. MIRENA [Concomitant]
     Active Substance: LEVONORGESTREL
     Dosage: UNK
     Route: 065
     Dates: start: 20230626
  9. LEVOTHYROXINE SODIUM [Concomitant]
     Active Substance: LEVOTHYROXINE SODIUM
     Dosage: 75 MICROGRAM, QD
     Route: 065
     Dates: start: 20230208
  10. DESLORATADINE [Concomitant]
     Active Substance: DESLORATADINE
     Dosage: 5 MILLIGRAM, QD
     Route: 065
     Dates: start: 20230807
  11. FLUOXETIN STADA [Concomitant]
     Dosage: 20 MILLIGRAM, QD
     Route: 048
     Dates: start: 20230828
  12. ESOMEPRAZOL PENSA [Concomitant]
     Dosage: 20 MILLIGRAM, QD
     Route: 065
     Dates: start: 20230807

REACTIONS (5)
  - Feeling of despair [Unknown]
  - Depression [Not Recovered/Not Resolved]
  - Anxiety [Not Recovered/Not Resolved]
  - Anger [Not Recovered/Not Resolved]
  - Suicidal ideation [Unknown]

NARRATIVE: CASE EVENT DATE: 20230801
